FAERS Safety Report 7070693-1 (Version None)
Quarter: 2010Q4

REPORT INFORMATION
  Report Type: 
  Country: None (occurrence: None)
  Receive Date: 20101027
  Receipt Date: 20101027
  Transmission Date: 20110411
  Serious: Yes (Other)
  Sender: FDA-Public Use
  Company Number: None

PATIENT
  Sex: Female
  Weight: 56.6996 kg

DRUGS (6)
  1. FENTANYL-25 [Suspect]
     Indication: PAIN
     Dosage: 1 PATH EVERY 48 HOURS TRANSDERMAL
     Route: 062
     Dates: start: 20090105, end: 20090204
  2. TRAMADOL HCL [Concomitant]
  3. LORTAB [Concomitant]
  4. PERCOCET [Concomitant]
  5. MORPHINE [Concomitant]
  6. KADIAN [Concomitant]

REACTIONS (3)
  - DRUG INEFFECTIVE [None]
  - DYSPNOEA [None]
  - NASOPHARYNGITIS [None]
